FAERS Safety Report 9935132 (Version 2)
Quarter: 2014Q2

REPORT INFORMATION
  Report Type: Spontaneous
  Country: BR (occurrence: BR)
  Receive Date: 20140228
  Receipt Date: 20140616
  Transmission Date: 20141212
  Serious: Yes (Other)
  Sender: FDA-Public Use
  Company Number: BR-PFIZER INC-2014057100

PATIENT
  Sex: Female

DRUGS (4)
  1. PRISTIQ [Suspect]
     Dosage: 150 MG (ONE TABLET AND A HALF), DAILY
     Route: 048
  2. PRISTIQ [Suspect]
     Dosage: 100 MG 1 TABLET DAILY
     Route: 048
  3. PRISTIQ [Suspect]
     Dosage: 100 MG HALF TABLET PER DAY
     Route: 048
  4. RIVOTRIL [Concomitant]
     Dosage: UNK

REACTIONS (3)
  - Suicide attempt [Unknown]
  - Depression [Unknown]
  - Drug ineffective [Unknown]
